FAERS Safety Report 18675214 (Version 1)
Quarter: 2020Q4

REPORT INFORMATION
  Report Type: Spontaneous
  Country: US (occurrence: US)
  Receive Date: 20201229
  Receipt Date: 20201229
  Transmission Date: 20210114
  Serious: No
  Sender: FDA-Public Use
  Company Number: US-TEVA-2020-US-1863770

PATIENT

DRUGS (1)
  1. TEMAZEPAM ACTAVIS [Suspect]
     Active Substance: TEMAZEPAM
     Route: 065

REACTIONS (4)
  - Drug ineffective [Unknown]
  - Headache [Unknown]
  - Product physical issue [Unknown]
  - Chest discomfort [Unknown]
